FAERS Safety Report 22606071 (Version 1)
Quarter: 2023Q2

REPORT INFORMATION
  Report Type: Report from Study
  Country: CA (occurrence: CA)
  Receive Date: 20230615
  Receipt Date: 20230615
  Transmission Date: 20230722
  Serious: Yes (Death, Other)
  Sender: FDA-Public Use
  Company Number: CA-Ipsen Biopharmaceuticals, Inc.-2023-14765

PATIENT
  Age: 76 Year
  Sex: Male

DRUGS (6)
  1. LANREOTIDE ACETATE [Suspect]
     Active Substance: LANREOTIDE ACETATE
     Indication: Carcinoid syndrome
     Route: 058
     Dates: start: 20230601
  2. FUROSEMIDE [Concomitant]
     Active Substance: FUROSEMIDE
  3. SPIRONOLACTONE [Concomitant]
     Active Substance: SPIRONOLACTONE
  4. TELMISARTAN [Concomitant]
     Active Substance: TELMISARTAN
  5. ALLOPURINOL [Concomitant]
     Active Substance: ALLOPURINOL
  6. LINAGLIPTIN [Concomitant]
     Active Substance: LINAGLIPTIN

REACTIONS (1)
  - Death [Fatal]

NARRATIVE: CASE EVENT DATE: 20230611
